FAERS Safety Report 10644598 (Version 1)
Quarter: 2014Q4

REPORT INFORMATION
  Report Type: Spontaneous
  Country: FR (occurrence: FR)
  Receive Date: 20141210
  Receipt Date: 20141210
  Transmission Date: 20150529
  Serious: Yes (Other)
  Sender: FDA-Public Use
  Company Number: FR-TAKEDA-2014TUS013338

PATIENT
  Age: 55 Year
  Sex: Female

DRUGS (2)
  1. ENTYVIO [Suspect]
     Active Substance: VEDOLIZUMAB
     Indication: CROHN^S DISEASE
     Dosage: 300 MG, FIRST DOSE
     Route: 042
     Dates: start: 201411, end: 201411
  2. ENTYVIO [Suspect]
     Active Substance: VEDOLIZUMAB
     Dosage: 300 MG, SECOND DOSE
     Route: 042
     Dates: start: 20141204, end: 20141204

REACTIONS (4)
  - Extravasation [Recovered/Resolved]
  - Joint swelling [Recovered/Resolved]
  - Medication error [Recovered/Resolved]
  - Injection site pain [Recovered/Resolved]

NARRATIVE: CASE EVENT DATE: 20141204
